FAERS Safety Report 7757629-2 (Version None)
Quarter: 2011Q3

REPORT INFORMATION
  Report Type: 
  Country: None (occurrence: None)
  Receive Date: 20110916
  Receipt Date: 20110913
  Transmission Date: 20111222
  Serious: Yes (Life-Threatening, Hospitalization, Other)
  Sender: FDA-Public Use
  Company Number: DE-BAYER-2011-046630

PATIENT
  Age: 20 Year
  Sex: Female
  Weight: 54.8 kg

DRUGS (1)
  1. YAZ [Suspect]
     Indication: CONTRACEPTION
     Dosage: 1 DF, QD
     Route: 048
     Dates: start: 20100501, end: 20101206

REACTIONS (5)
  - PULMONARY EMBOLISM [None]
  - TACHYCARDIA [None]
  - DYSPNOEA [None]
  - COR PULMONALE ACUTE [None]
  - PELVIC VENOUS THROMBOSIS [None]
